FAERS Safety Report 25476095 (Version 2)
Quarter: 2025Q2

REPORT INFORMATION
  Report Type: Report from Study
  Country: US (occurrence: US)
  Receive Date: 20250625
  Receipt Date: 20250627
  Transmission Date: 20250717
  Serious: No
  Sender: NOVARTIS
  Company Number: US-002147023-NVSC2025US097338

PATIENT
  Sex: Female

DRUGS (1)
  1. KESIMPTA [Suspect]
     Active Substance: OFATUMUMAB
     Indication: Multiple sclerosis
     Dosage: 20 MG, QW (WEEKLY)
     Route: 065
     Dates: start: 20250616

REACTIONS (5)
  - Device issue [Unknown]
  - Injection site haemorrhage [Unknown]
  - Accidental exposure to product [Unknown]
  - Incorrect dose administered by device [Unknown]
  - Device leakage [Unknown]
